FAERS Safety Report 18806355 (Version 1)
Quarter: 2021Q1

REPORT INFORMATION
  Report Type: Report from Study
  Country: US (occurrence: US)
  Receive Date: 20210129
  Receipt Date: 20210129
  Transmission Date: 20210419
  Serious: No
  Sender: FDA-Public Use
  Company Number: US-BIOVITRUM-2020US5654

PATIENT
  Age: 68 Year
  Sex: Female

DRUGS (15)
  1. KINERET [Suspect]
     Active Substance: ANAKINRA
     Indication: PERIPHERAL SWELLING
     Route: 058
  2. MAGNESIUM [Concomitant]
     Active Substance: MAGNESIUM
     Dosage: ONE TABLET DAILY
     Route: 065
  3. GABAPENTIN. [Concomitant]
     Active Substance: GABAPENTIN
     Dosage: NIGHT
     Route: 065
  4. GABAPENTIN. [Concomitant]
     Active Substance: GABAPENTIN
     Dosage: MORNING
     Route: 065
  5. ETODOLAC. [Concomitant]
     Active Substance: ETODOLAC
  6. TROSPIUM [Concomitant]
     Active Substance: TROSPIUM
  7. MIRTAPAX [Concomitant]
     Indication: RESTLESS LEGS SYNDROME
     Route: 065
  8. SODIUM CHLORIDE. [Concomitant]
     Active Substance: SODIUM CHLORIDE
     Route: 065
  9. HYDROXYCHLOROQUINE [Concomitant]
     Active Substance: HYDROXYCHLOROQUINE
     Dosage: TWICE DAILY
     Route: 065
  10. METHOTREXATE. [Concomitant]
     Active Substance: METHOTREXATE
     Dosage: PILL
     Route: 065
  11. ASPIRIN. [Concomitant]
     Active Substance: ASPIRIN
     Dosage: DAILY
     Route: 065
  12. KEFLEX [Concomitant]
     Active Substance: CEPHALEXIN
     Route: 065
  13. PEPCID [Concomitant]
     Active Substance: FAMOTIDINE
     Dosage: DAILY
     Route: 065
  14. KINERET [Suspect]
     Active Substance: ANAKINRA
     Indication: RHEUMATOID ARTHRITIS
     Route: 065
     Dates: start: 20200914
  15. NIACIN. [Concomitant]
     Active Substance: NIACIN
     Dosage: PILL DAILY
     Route: 065

REACTIONS (11)
  - Fatigue [Unknown]
  - Peripheral swelling [Unknown]
  - Condition aggravated [Unknown]
  - Alopecia [Unknown]
  - Malaise [Unknown]
  - Constipation [Unknown]
  - Off label use [Not Recovered/Not Resolved]
  - Skin odour abnormal [Unknown]
  - Allergic sinusitis [Unknown]
  - Limb discomfort [Unknown]
  - Pain [Unknown]

NARRATIVE: CASE EVENT DATE: 20201110
